FAERS Safety Report 4317772-7 (Version None)
Quarter: 2004Q1

REPORT INFORMATION
  Report Type: 
  Country: None (occurrence: None)
  Receive Date: 20040315
  Receipt Date: 20040304
  Transmission Date: 20041129
  Serious: Yes (Death)
  Sender: FDA-Public Use
  Company Number: WAES 0403USA00689

PATIENT
  Age: 55 Year
  Sex: Male

DRUGS (3)
  1. [THERAPY UNSPECIFIED] [Concomitant]
     Dates: start: 20020801, end: 20020901
  2. PRIMAXIN [Suspect]
     Dates: start: 20020901, end: 20020901
  3. FLOMOXEF [Concomitant]
     Dates: start: 20020901, end: 20020901

REACTIONS (3)
  - BACTERIAL INFECTION [None]
  - BRAIN ABSCESS [None]
  - MULTIPLE MYELOMA [None]
